FAERS Safety Report 10195053 (Version 3)
Quarter: 2014Q2

REPORT INFORMATION
  Report Type: Report from Study
  Country: US (occurrence: US)
  Receive Date: 20140526
  Receipt Date: 20140619
  Transmission Date: 20141212
  Serious: Yes (Hospitalization)
  Sender: FDA-Public Use
  Company Number: PHEH2014US009402

PATIENT
  Age: 81 Year
  Sex: Female
  Weight: 56.2 kg

DRUGS (3)
  1. AFINITOR [Suspect]
     Indication: BREAST CANCER
     Dosage: 10 MG, QD
     Route: 048
     Dates: start: 201403, end: 20140505
  2. AFINITOR [Suspect]
     Indication: LYMPHOMA
     Dosage: 5 MG, QD
     Route: 048
  3. AFINITOR [Suspect]
     Dosage: 7.5 MG, QD
     Route: 048

REACTIONS (5)
  - Cardiac disorder [Unknown]
  - Pleural effusion [Unknown]
  - Lung infiltration [Unknown]
  - Fatigue [Recovering/Resolving]
  - Dyspnoea [Unknown]
